FAERS Safety Report 7898260-8 (Version None)
Quarter: 2011Q4

REPORT INFORMATION
  Report Type: 
  Country: None (occurrence: None)
  Receive Date: 20111107
  Receipt Date: 20111027
  Transmission Date: 20120403
  Serious: Yes (Hospitalization)
  Sender: FDA-Public Use
  Company Number: JP-GLAXOSMITHKLINE-B0750164A

PATIENT
  Sex: Female

DRUGS (6)
  1. LEVOTOMIN [Concomitant]
  2. LEVOFLOXACIN [Concomitant]
     Dosage: 500MG PER DAY
     Route: 048
     Dates: start: 20110917, end: 20110919
  3. DICLOFENAC SODIUM [Concomitant]
     Route: 054
     Dates: start: 20110917, end: 20110919
  4. DEPAKENE [Concomitant]
     Dosage: 400MG PER DAY
     Route: 048
     Dates: start: 20100109, end: 20110919
  5. SEROQUEL [Concomitant]
     Route: 048
  6. LAMICTAL [Suspect]
     Indication: BIPOLAR DISORDER
     Dosage: 12.5MG ALTERNATE DAYS
     Route: 048
     Dates: start: 20110913, end: 20110919

REACTIONS (23)
  - TOXIC EPIDERMAL NECROLYSIS [None]
  - ASPARTATE AMINOTRANSFERASE INCREASED [None]
  - LIP EROSION [None]
  - BLOOD CREATININE INCREASED [None]
  - GAMMA-GLUTAMYLTRANSFERASE INCREASED [None]
  - STEVENS-JOHNSON SYNDROME [None]
  - ALANINE AMINOTRANSFERASE INCREASED [None]
  - OCULAR HYPERAEMIA [None]
  - BLOOD LACTATE DEHYDROGENASE INCREASED [None]
  - HYPERTHERMIA [None]
  - BLISTER [None]
  - SKIN EROSION [None]
  - PYREXIA [None]
  - BLOOD UREA INCREASED [None]
  - BLOOD BILIRUBIN DECREASED [None]
  - PROTEIN TOTAL DECREASED [None]
  - GENERALISED ERYTHEMA [None]
  - VULVAL DISORDER [None]
  - BLOOD CREATINE PHOSPHOKINASE INCREASED [None]
  - SCAB [None]
  - ORAL MUCOSA EROSION [None]
  - ERYTHEMA [None]
  - C-REACTIVE PROTEIN INCREASED [None]
